FAERS Safety Report 7478537-0 (Version None)
Quarter: 2011Q2

REPORT INFORMATION
  Report Type: 
  Country: None (occurrence: None)
  Receive Date: 20110505
  Receipt Date: 20110423
  Transmission Date: 20111010
  Serious: Yes (Other)
  Sender: FDA-Public Use
  Company Number: 2011-1237

PATIENT
  Age: 11 Year
  Sex: Male
  Weight: 25 kg

DRUGS (5)
  1. ENALAPRIL MALEATE [Concomitant]
  2. CALCIUM (CALCIUM) [Concomitant]
  3. VITAMIN D [Concomitant]
  4. MULTIVITAMIN (MULTIVITAMIN) [Concomitant]
  5. INCRELEX [Suspect]
     Indication: BODY HEIGHT BELOW NORMAL
     Dosage: 6 MG (3 MG, 2 IN 1 D), SUBCUTANEOUS
     Route: 058
     Dates: start: 20091027, end: 20110421

REACTIONS (1)
  - HYPOGLYCAEMIC SEIZURE [None]
